FAERS Safety Report 17721707 (Version 3)
Quarter: 2020Q3

REPORT INFORMATION
  Report Type: Other
  Country: CA (occurrence: CA)
  Receive Date: 20200429
  Receipt Date: 20200824
  Transmission Date: 20201102
  Serious: Yes (Other)
  Sender: FDA-Public Use
  Company Number: CA-ROCHE-2591500

PATIENT
  Age: 67 Year
  Sex: Female

DRUGS (13)
  1. VITAMIN D3 [Concomitant]
     Active Substance: CHOLECALCIFEROL
     Indication: OSTEOPOROSIS PROPHYLAXIS
     Dosage: 10000 IU
     Route: 065
     Dates: start: 20181109
  2. CALCIUM CARBONATE. [Concomitant]
     Active Substance: CALCIUM CARBONATE
     Indication: OSTEOPOROSIS PROPHYLAXIS
     Dosage: 500 MG
     Route: 065
     Dates: start: 20181109
  3. CHLOPHEDIANOL. [Concomitant]
     Active Substance: CHLOPHEDIANOL
     Indication: COUGH
     Dosage: 25 MG/5 ML
     Route: 065
     Dates: start: 20191111, end: 20191118
  4. TIMOLOL. [Concomitant]
     Active Substance: TIMOLOL
     Indication: GLAUCOMA
     Dosage: 5 MG/ML
     Route: 065
     Dates: start: 20170124
  5. MYDRIACYL [Concomitant]
     Active Substance: TROPICAMIDE
     Indication: MYDRIASIS
     Dosage: 2.5 %
     Route: 065
     Dates: start: 20170222
  6. COD?LIVER OIL [Concomitant]
     Active Substance: COD LIVER OIL
     Indication: PRODUCT USED FOR UNKNOWN INDICATION
     Dosage: 1 CO
     Route: 065
     Dates: start: 20170718
  7. REFRESH OPTIVE [Concomitant]
     Active Substance: CARBOXYMETHYLCELLULOSE SODIUM\GLYCERIN
     Indication: DRY EYE
     Dosage: 1 GTT
     Route: 065
     Dates: start: 20180213
  8. ALCAIN [Concomitant]
     Indication: PROPHYLAXIS
     Dosage: 0.5 %
     Route: 065
     Dates: start: 20170222
  9. MYDFRIN [Concomitant]
     Active Substance: PHENYLEPHRINE HYDROCHLORIDE
     Indication: MYDRIASIS
     Dosage: 1 %
     Route: 065
     Dates: start: 20170222
  10. COSOPT [Concomitant]
     Active Substance: DORZOLAMIDE HYDROCHLORIDE\TIMOLOL MALEATE
     Indication: GLAUCOMA
     Dosage: 25 %
     Route: 065
     Dates: start: 20170124
  11. RANIBIZUMAB. [Suspect]
     Active Substance: RANIBIZUMAB
     Route: 031
     Dates: start: 20191217
  12. RANIBIZUMAB. [Suspect]
     Active Substance: RANIBIZUMAB
     Indication: NEOVASCULAR AGE-RELATED MACULAR DEGENERATION
     Dosage: 0.5 MG
     Route: 031
  13. ERYTHROMYCIN. [Concomitant]
     Active Substance: ERYTHROMYCIN
     Indication: EYE PRURITUS
     Dosage: 0.5 %
     Route: 065
     Dates: start: 20200320, end: 20200324

REACTIONS (3)
  - Nasopharyngitis [Recovered/Resolved]
  - Drug ineffective [Unknown]
  - Subretinal fluid [Recovered/Resolved]

NARRATIVE: CASE EVENT DATE: 20191217
